FAERS Safety Report 15931087 (Version 1)
Quarter: 2019Q1

REPORT INFORMATION
  Report Type: Spontaneous
  Country: BE (occurrence: BE)
  Receive Date: 20190207
  Receipt Date: 20190207
  Transmission Date: 20190417
  Serious: Yes (Hospitalization, Other)
  Sender: FDA-Public Use
  Company Number: BE-SUN PHARMACEUTICAL INDUSTRIES LTD-2018R1-180332

PATIENT
  Age: 65 Year
  Sex: Female

DRUGS (2)
  1. PREDNISONE. [Suspect]
     Active Substance: PREDNISONE
     Dosage: 1 MILLIGRAM/KILOGRAM, DAILY GRADUAL TAPERING OF THE DOSE
     Route: 065
     Dates: start: 201402
  2. PREDNISONE. [Suspect]
     Active Substance: PREDNISONE
     Indication: ORGANISING PNEUMONIA
     Dosage: 0.5 MILLIGRAM/KILOGRAM, DAILY
     Route: 065
     Dates: start: 201310

REACTIONS (5)
  - Hydrocephalus [Recovered/Resolved]
  - Somnolence [Recovered/Resolved]
  - Aspergillus infection [Recovered/Resolved]
  - Pulmonary mycosis [Recovered/Resolved]
  - Brain abscess [Recovered/Resolved]

NARRATIVE: CASE EVENT DATE: 2014
